FAERS Safety Report 18651627 (Version 3)
Quarter: 2023Q1

REPORT INFORMATION
  Report Type: Report from Study
  Country: BR (occurrence: BR)
  Receive Date: 20201222
  Receipt Date: 20230223
  Transmission Date: 20230418
  Serious: Yes (Hospitalization)
  Sender: FDA-Public Use
  Company Number: BR-BIOGEN-2020BI00959809

PATIENT
  Sex: Female
  Weight: 75 kg

DRUGS (10)
  1. TECFIDERA [Suspect]
     Active Substance: DIMETHYL FUMARATE
     Indication: Multiple sclerosis
     Route: 050
     Dates: start: 20150102
  2. TECFIDERA [Suspect]
     Active Substance: DIMETHYL FUMARATE
     Route: 050
     Dates: start: 20150102
  3. TECFIDERA [Suspect]
     Active Substance: DIMETHYL FUMARATE
     Route: 050
     Dates: start: 2015, end: 20230122
  4. DESOGESTREL [Suspect]
     Active Substance: DESOGESTREL
     Indication: Menstrual disorder
     Dosage: THERAPY START DATE 16-SEP-2020
     Route: 050
  5. PURAN [Concomitant]
     Active Substance: LEVOTHYROXINE SODIUM
     Indication: Hypothyroidism
     Route: 050
     Dates: start: 2008
  6. PURAN [Concomitant]
     Active Substance: LEVOTHYROXINE SODIUM
     Route: 050
     Dates: start: 2008
  7. VITAMIN D [Concomitant]
     Active Substance: VITAMIN D NOS
     Indication: Product used for unknown indication
     Route: 050
  8. GLIFAGE [Concomitant]
     Active Substance: METFORMIN HYDROCHLORIDE
     Indication: Product used for unknown indication
     Route: 050
  9. SIMVASTATIN [Concomitant]
     Active Substance: SIMVASTATIN
     Indication: Product used for unknown indication
     Route: 050
  10. SYNTHROID [Concomitant]
     Active Substance: LEVOTHYROXINE SODIUM
     Indication: Hypothyroidism
     Route: 050
     Dates: start: 2010

REACTIONS (13)
  - Haemoglobin decreased [Recovered/Resolved]
  - Red blood cell count abnormal [Not Recovered/Not Resolved]
  - Blood iron decreased [Unknown]
  - Serum ferritin decreased [Unknown]
  - Uterine leiomyoma [Unknown]
  - Loss of consciousness [Recovered/Resolved]
  - Menopause [Not Recovered/Not Resolved]
  - Menstruation irregular [Recovered/Resolved]
  - Heavy menstrual bleeding [Recovered/Resolved]
  - Dysmenorrhoea [Not Recovered/Not Resolved]
  - Premenstrual syndrome [Not Recovered/Not Resolved]
  - Leiomyoma [Not Recovered/Not Resolved]
  - Multiple sclerosis relapse [Not Recovered/Not Resolved]

NARRATIVE: CASE EVENT DATE: 20170101
